FAERS Safety Report 7477525-8 (Version None)
Quarter: 2011Q2

REPORT INFORMATION
  Report Type: 
  Country: None (occurrence: None)
  Receive Date: 20110513
  Receipt Date: 20100624
  Transmission Date: 20111010
  Serious: Yes (Death, Other)
  Sender: FDA-Public Use
  Company Number: CN-JNJFOC-20100607588

PATIENT
  Age: 37 Year
  Sex: Female

DRUGS (13)
  1. MANNITOL [Concomitant]
     Indication: INFECTION
     Route: 065
  2. ACYCLOVIR [Concomitant]
     Indication: INFECTION
     Route: 065
  3. DIAZEPAM [Concomitant]
     Indication: INFECTION
     Route: 065
  4. VALPROATE SODIUM [Concomitant]
     Indication: INFECTION
     Route: 065
  5. SPORANOX [Suspect]
     Indication: INFECTION
     Route: 041
  6. TIENAM [Concomitant]
     Indication: INFECTION
     Route: 065
  7. VANCOMYCIN [Concomitant]
     Indication: INFECTION
     Route: 065
  8. SPORANOX [Suspect]
     Indication: LUNG INFECTION
     Route: 041
  9. SPORANOX [Suspect]
     Route: 041
  10. VALPROATE SODIUM [Concomitant]
     Route: 065
  11. MAXIPIME [Concomitant]
     Indication: INFECTION
     Route: 065
  12. SPORANOX [Suspect]
     Route: 041
  13. NEUPOGEN [Concomitant]
     Indication: INFECTION
     Route: 065

REACTIONS (2)
  - NEOPLASM MALIGNANT [None]
  - CARDIAC FAILURE [None]
